FAERS Safety Report 5921386-2 (Version None)
Quarter: 2008Q4

REPORT INFORMATION
  Report Type: 
  Country: None (occurrence: None)
  Receive Date: 20081016
  Receipt Date: 20081003
  Transmission Date: 20090506
  Serious: Yes (Other)
  Sender: FDA-Public Use
  Company Number: GB-BAUSCH-2008BL004252

PATIENT
  Age: 40 Year
  Sex: Male

DRUGS (2)
  1. PREDNISOLONE [Suspect]
     Indication: SYMPATHETIC OPHTHALMIA
  2. CYCLOSPORINE [Suspect]
     Indication: SYMPATHETIC OPHTHALMIA

REACTIONS (2)
  - GASTROENTERITIS [None]
  - UVEITIS [None]
